FAERS Safety Report 16727662 (Version 1)
Quarter: 2019Q3

REPORT INFORMATION
  Report Type: Spontaneous
  Country: DE (occurrence: DE)
  Receive Date: 20190822
  Receipt Date: 20190822
  Transmission Date: 20191005
  Serious: Yes (Hospitalization)
  Sender: FDA-Public Use
  Company Number: DE-TEVA-2019-DE-1093889

PATIENT
  Age: 76 Year
  Sex: Female
  Weight: 65 kg

DRUGS (15)
  1. SIMVASTATIN. [Concomitant]
     Active Substance: SIMVASTATIN
     Dosage: 40 MG, 0-0-1-0
  2. FLUTIFORM 250MIKROGRAMM/10MIKROGRAMM PRO SPRUHSTOB [Concomitant]
     Dosage: 250|10 MICROGRAM, 2-0-0-0
  3. ATROVENT [Suspect]
     Active Substance: IPRATROPIUM BROMIDE
     Dosage: NK MG, NEED
     Route: 055
  4. NITROLINGUAL [Concomitant]
     Active Substance: NITROGLYCERIN
     Dosage: NK MG, NEED
  5. SALBUTAMOL [Suspect]
     Active Substance: ALBUTEROL
     Dosage: NK MG, NEED
     Route: 055
  6. METAMIZOL [Concomitant]
     Active Substance: METAMIZOLE SODIUM
     Dosage: NK MG, NEED TO 2X20, DROPS
  7. PANTOPRAZOL [Concomitant]
     Active Substance: PANTOPRAZOLE SODIUM
     Dosage: 40 MG, ONE 2. D / 1-0-0-0
  8. SPIRIVA [Concomitant]
     Active Substance: TIOTROPIUM BROMIDE MONOHYDRATE
     Dosage: 18 MICROGRAM, 2-0-0-0
  9. RISEDRON [Concomitant]
     Active Substance: RISEDRONATE SODIUM
     Dosage: 35 MG, SOBER ON MONDAYS
  10. LOSARTAN. [Concomitant]
     Active Substance: LOSARTAN
     Dosage: 50 MG, 1-0-1-0
  11. ASS 100 [Concomitant]
     Active Substance: ASPIRIN
     Dosage: 100 MG, 1-0-0-0
  12. CALCIUM [Concomitant]
     Active Substance: CALCIUM
     Dosage: NK MG, 1-0-0-0
  13. METOPROLOL. [Suspect]
     Active Substance: METOPROLOL
     Dosage: 47.5 MG, 1-0-1-0
  14. BERODUAL [Suspect]
     Active Substance: FENOTEROL HYDROBROMIDE\IPRATROPIUM BROMIDE
     Dosage: NK MICROGRAM, NEED MAX. 3X2 STROKE
  15. VIGANTOL OL 20000I.E./ML [Concomitant]
     Dosage: NK MG, 3-0-0-0, DROPS

REACTIONS (3)
  - Dyspnoea [Unknown]
  - Retching [Unknown]
  - Nausea [Unknown]
